FAERS Safety Report 7060954-4 (Version None)
Quarter: 2010Q4

REPORT INFORMATION
  Report Type: 
  Country: None (occurrence: None)
  Receive Date: 20101026
  Receipt Date: 20101015
  Transmission Date: 20110411
  Serious: Yes (Other)
  Sender: FDA-Public Use
  Company Number: US-BIOGENIDEC-2010BI036649

PATIENT
  Age: 36 Year
  Sex: Female
  Weight: 49 kg

DRUGS (4)
  1. AVONEX [Suspect]
     Indication: MULTIPLE SCLEROSIS
     Route: 030
     Dates: start: 19960101, end: 20030101
  2. AVONEX [Suspect]
     Route: 030
     Dates: start: 20030101
  3. AVONEX [Suspect]
     Route: 030
     Dates: start: 20050301
  4. TYSABRI [Concomitant]
     Indication: MULTIPLE SCLEROSIS
     Route: 042
     Dates: start: 20050214, end: 20050214

REACTIONS (10)
  - ANAPHYLACTIC REACTION [None]
  - BLINDNESS [None]
  - MULTIPLE SCLEROSIS [None]
  - MULTIPLE SCLEROSIS RELAPSE [None]
  - NEURALGIA [None]
  - OPHTHALMOPLEGIA [None]
  - STAPHYLOCOCCAL SKIN INFECTION [None]
  - STRESS [None]
  - URINARY TRACT INFECTION [None]
  - VISION BLURRED [None]
